FAERS Safety Report 15857538 (Version 1)
Quarter: 2019Q1

REPORT INFORMATION
  Report Type: Spontaneous
  Country: US (occurrence: US)
  Receive Date: 20190122
  Receipt Date: 20190122
  Transmission Date: 20190417
  Serious: No
  Sender: FDA-Public Use
  Company Number: None

PATIENT
  Sex: Female
  Weight: 59.3 kg

DRUGS (1)
  1. REMICADE [Suspect]
     Active Substance: INFLIXIMAB
     Indication: ANKYLOSING SPONDYLITIS
     Dosage: OTHER FREQUENCY:D1, D29, THEN Q8W;?
     Route: 042
     Dates: start: 20190122, end: 20190122

REACTIONS (5)
  - Hypoaesthesia [None]
  - Throat tightness [None]
  - Chest discomfort [None]
  - Intraocular pressure increased [None]
  - Paraesthesia [None]

NARRATIVE: CASE EVENT DATE: 20190122
